FAERS Safety Report 8840315 (Version 1)
Quarter: 2012Q4

REPORT INFORMATION
  Report Type: Report from Study
  Country: US (occurrence: US)
  Receive Date: 20121015
  Receipt Date: 20121015
  Transmission Date: 20130627
  Serious: Yes (Hospitalization, Other)
  Sender: FDA-Public Use
  Company Number: US-ABBOTT-12P-163-0993069-00

PATIENT
  Age: 51 Year
  Sex: Female

DRUGS (8)
  1. HUMIRA [Suspect]
     Indication: RHEUMATOID ARTHRITIS
     Dates: end: 2010
  2. SOMA [Concomitant]
     Indication: MUSCLE SPASMS
  3. PANTOPRAZOLE [Concomitant]
     Indication: GASTROOESOPHAGEAL REFLUX DISEASE
  4. ATENOLOL [Concomitant]
     Indication: TACHYCARDIA
     Dosage: 25 mg daily
  5. PREDNISONE [Concomitant]
     Indication: RHEUMATOID ARTHRITIS
  6. LOSARTAN POTASSIUM [Concomitant]
     Indication: HYPERTENSION
  7. XANAX [Concomitant]
     Indication: ANXIETY
  8. LASIX [Concomitant]
     Indication: OEDEMA
     Dosage: Daily as needed

REACTIONS (13)
  - Depression [Not Recovered/Not Resolved]
  - Renal failure [Unknown]
  - Epstein-Barr virus infection [Not Recovered/Not Resolved]
  - Pain [Not Recovered/Not Resolved]
  - Psoriasis [Recovered/Resolved]
  - Psoriatic arthropathy [Unknown]
  - Fatigue [Unknown]
  - Fall [Not Recovered/Not Resolved]
  - Haematoma [Unknown]
  - Blood pressure diastolic increased [Not Recovered/Not Resolved]
  - Vitamin D deficiency [Unknown]
  - Arthropathy [Unknown]
  - Arthropathy [Unknown]
